FAERS Safety Report 6090241-2 (Version None)
Quarter: 2009Q1

REPORT INFORMATION
  Report Type: 
  Country: None (occurrence: None)
  Receive Date: 20090224
  Receipt Date: 20081211
  Transmission Date: 20090719
  Serious: No
  Sender: FDA-Public Use
  Company Number: US-ABBOTT-08P-163-0492525-00

PATIENT
  Sex: Male
  Weight: 89.438 kg

DRUGS (1)
  1. SIMCOR [Suspect]
     Indication: BLOOD TRIGLYCERIDES INCREASED
     Dosage: 1 - 500/20MG TABLET DAILY
     Dates: start: 20081009

REACTIONS (2)
  - BLOOD GLUCOSE INCREASED [None]
  - PSORIASIS [None]
